FAERS Safety Report 14174699 (Version 1)
Quarter: 2017Q4

REPORT INFORMATION
  Report Type: Spontaneous
  Country: US (occurrence: US)
  Receive Date: 20171109
  Receipt Date: 20171109
  Transmission Date: 20180321
  Serious: No
  Sender: FDA-Public Use
  Company Number: US-ALLERGAN-1682560US

PATIENT
  Age: 53 Year
  Sex: Male

DRUGS (1)
  1. ALPHAGAN P [Suspect]
     Active Substance: BRIMONIDINE TARTRATE
     Indication: GLAUCOMA
     Dosage: 2 GTT, Q8HR
     Route: 047
     Dates: start: 20161220, end: 20161220

REACTIONS (3)
  - Mydriasis [Recovered/Resolved]
  - Conjunctivitis [Recovered/Resolved]
  - Eye discharge [Recovered/Resolved]

NARRATIVE: CASE EVENT DATE: 20161220
